FAERS Safety Report 5628706-7 (Version None)
Quarter: 2008Q1

REPORT INFORMATION
  Report Type: 
  Country: None (occurrence: None)
  Receive Date: 20080215
  Receipt Date: 20080206
  Transmission Date: 20080703
  Serious: Yes (Other)
  Sender: FDA-Public Use
  Company Number: GB-PFIZER INC-2008012308

PATIENT
  Age: 37 Year
  Weight: 66 kg

DRUGS (3)
  1. CHANTIX [Suspect]
     Indication: SMOKING CESSATION THERAPY
     Route: 048
  2. SERETIDE [Concomitant]
     Route: 055
  3. YASMIN [Concomitant]

REACTIONS (2)
  - DEPRESSION [None]
  - OVERDOSE [None]
